FAERS Safety Report 7501595-1 (Version None)
Quarter: 2011Q2

REPORT INFORMATION
  Report Type: 
  Country: None (occurrence: None)
  Receive Date: 20110524
  Receipt Date: 20110516
  Transmission Date: 20111010
  Serious: Yes (Hospitalization)
  Sender: FDA-Public Use
  Company Number: IN-MERCK-1105USA02775

PATIENT
  Age: 44 Year
  Sex: Male

DRUGS (3)
  1. JANUVIA [Suspect]
     Indication: TYPE 2 DIABETES MELLITUS
     Route: 048
     Dates: start: 20100101, end: 20100101
  2. HYDROCHLOROTHIAZIDE AND OLMESARTAN MEDOXOMIL [Concomitant]
     Route: 065
  3. INSUGEN 30/70 [Concomitant]
     Route: 065

REACTIONS (2)
  - DIABETIC NEUROPATHY [None]
  - URINARY RETENTION [None]
